FAERS Safety Report 14125037 (Version 3)
Quarter: 2017Q4

REPORT INFORMATION
  Report Type: Report from Study
  Country: CA (occurrence: CA)
  Receive Date: 20171025
  Receipt Date: 20171114
  Transmission Date: 20180321
  Serious: Yes (Hospitalization)
  Sender: FDA-Public Use
  Company Number: CA-TAKEDA-2017MPI009320

PATIENT
  Age: 72 Year
  Sex: Male
  Weight: 84 kg

DRUGS (28)
  1. APO-SALVENT                        /00139501/ [Concomitant]
     Dosage: 200 UG, UNK
     Route: 065
     Dates: start: 20170615, end: 20170617
  2. ACYCLOVIR                          /00587301/ [Concomitant]
     Active Substance: ACYCLOVIR
     Route: 065
  3. VITAMIN D                          /00107901/ [Concomitant]
     Active Substance: ERGOCALCIFEROL
     Route: 065
  4. IXAZOMIB [Suspect]
     Active Substance: IXAZOMIB
     Dosage: 4 MG, UNK
     Route: 048
     Dates: start: 20170903
  5. ASA [Concomitant]
     Active Substance: ASPIRIN
     Dosage: 80 MG, QD
     Route: 048
  6. STATEX                             /00036302/ [Concomitant]
     Active Substance: MORPHINE SULFATE
     Dosage: UNK
     Route: 048
     Dates: start: 20170718, end: 20170718
  7. TRAZODONE [Concomitant]
     Active Substance: TRAZODONE HYDROCHLORIDE
     Route: 065
  8. CODEINE [Concomitant]
     Active Substance: CODEINE
     Dosage: 6 ML, UNK
     Route: 048
     Dates: start: 20171011, end: 20171011
  9. PRO-DEXAMETHASONE [Suspect]
     Active Substance: DEXAMETHASONE
     Indication: PRODUCT USED FOR UNKNOWN INDICATION
     Dosage: 20 MG, 1/WEEK
     Route: 048
     Dates: start: 20170830, end: 20171016
  10. VITAMIN B12 [Concomitant]
     Active Substance: CYANOCOBALAMIN
     Dosage: 1200 UG, 2/WEEK
     Route: 048
     Dates: start: 20160303, end: 20171016
  11. DOCUSATE SODIUM. [Concomitant]
     Active Substance: DOCUSATE SODIUM
     Dosage: 100 MG, UNK
     Route: 048
     Dates: start: 20170419, end: 20170623
  12. HYDROCORTISONE. [Concomitant]
     Active Substance: HYDROCORTISONE
     Route: 065
  13. IXAZOMIB [Suspect]
     Active Substance: IXAZOMIB
     Indication: PLASMA CELL MYELOMA
     Dosage: 4 MG, UNK
     Route: 048
  14. PMS SENNOSIDES [Concomitant]
     Dosage: 8.6 MG, UNK
     Route: 048
     Dates: start: 20170718, end: 20170817
  15. APO-VALACYCLOVIR [Concomitant]
     Active Substance: VALACYCLOVIR HYDROCHLORIDE
     Dosage: 500 MG, BID
     Route: 048
     Dates: start: 20170630, end: 20171031
  16. REVLIMID [Concomitant]
     Active Substance: LENALIDOMIDE
     Dosage: 25 MG, UNK
     Route: 048
     Dates: start: 20170815, end: 20171011
  17. LAX-A-DAY [Concomitant]
     Dosage: UNK
     Route: 048
     Dates: start: 20170419, end: 20170419
  18. DEXILANT [Concomitant]
     Active Substance: DEXLANSOPRAZOLE
     Dosage: 60 MG, QD
     Route: 048
     Dates: start: 20170529, end: 20170923
  19. CLONAZEPAM. [Concomitant]
     Active Substance: CLONAZEPAM
     Route: 065
  20. VORICONAZOLE SANDOZ [Concomitant]
     Dosage: 300 MG, BID
     Route: 048
     Dates: start: 20171011, end: 20171011
  21. COVERSYL                           /00790702/ [Concomitant]
     Active Substance: PERINDOPRIL
     Dosage: 2 MG, QD
     Route: 048
     Dates: start: 20170718, end: 20170718
  22. ZENHALE [Concomitant]
     Active Substance: FORMOTEROL FUMARATE\MOMETASONE FUROATE
     Dosage: UNK, BID
     Route: 065
     Dates: start: 20170814, end: 20171025
  23. COPHYLAC [Concomitant]
     Route: 065
  24. PRO-CEFADROXIL [Concomitant]
     Dosage: 500 MG, UNK
     Route: 048
     Dates: start: 20171011, end: 20171011
  25. POTASSIUM CHLORIDE. [Concomitant]
     Active Substance: POTASSIUM CHLORIDE
     Dosage: 40 MMOL, BID
     Route: 048
     Dates: start: 20171011, end: 20171011
  26. IXAZOMIB [Suspect]
     Active Substance: IXAZOMIB
     Dosage: 4 MG, UNK
     Route: 048
     Dates: start: 20170815, end: 20171011
  27. PAMIDRONATE [Concomitant]
     Active Substance: PAMIDRONATE DISODIUM
     Dosage: 90 MG, Q4HR
     Route: 042
     Dates: start: 20170406, end: 20170709
  28. PRO-LORAZEPAM [Concomitant]
     Dosage: UNK
     Route: 048
     Dates: start: 20171018, end: 20171021

REACTIONS (1)
  - Bronchopulmonary aspergillosis [Recovered/Resolved]
